FAERS Safety Report 7628779-6 (Version None)
Quarter: 2011Q3

REPORT INFORMATION
  Report Type: 
  Country: None (occurrence: None)
  Receive Date: 20110722
  Receipt Date: 20110719
  Transmission Date: 20111222
  Serious: Yes (Other)
  Sender: FDA-Public Use
  Company Number: GB-PFIZER INC-2011163308

PATIENT
  Age: 42 Year
  Sex: Female

DRUGS (1)
  1. NEURONTIN [Suspect]
     Indication: EPILEPSY

REACTIONS (18)
  - LYMPHADENOPATHY [None]
  - SWELLING FACE [None]
  - SOMNAMBULISM [None]
  - HYPOAESTHESIA ORAL [None]
  - HEAD INJURY [None]
  - HYPOVITAMINOSIS [None]
  - LIP SWELLING [None]
  - AGGRESSION [None]
  - WEIGHT INCREASED [None]
  - CONVULSION [None]
  - ALOPECIA [None]
  - GENERALISED OEDEMA [None]
  - FALL [None]
  - STOMATITIS [None]
  - CYSTITIS [None]
  - RASH MACULAR [None]
  - ANXIETY [None]
  - ORAL PAIN [None]
